FAERS Safety Report 4822991-7 (Version None)
Quarter: 2005Q4

REPORT INFORMATION
  Report Type: 
  Country: None (occurrence: None)
  Receive Date: 20051108
  Receipt Date: 20050928
  Transmission Date: 20060501
  Serious: Yes (Hospitalization)
  Sender: FDA-Public Use
  Company Number: JP-NOVOPROD-247328

PATIENT
  Age: 67 Year
  Sex: Female
  Weight: 48 kg

DRUGS (5)
  1. INNOLET R CHU [Suspect]
     Indication: INSULIN-REQUIRING TYPE II DIABETES MELLITUS
     Dosage: 6 IU 3 TIMES A DAY
     Route: 058
     Dates: start: 20050818
  2. EBRANTIL [Suspect]
     Indication: CHOLELITHIASIS
     Dosage: 2 CAPS, QD
     Route: 048
     Dates: start: 20050831, end: 20050928
  3. UBRETID [Suspect]
     Dosage: 3 TAB, UNK
     Route: 048
     Dates: start: 20050831, end: 20050928
  4. MYONAL [Concomitant]
     Indication: OSTEOARTHRITIS
     Dosage: 3 TAB, UNK
     Route: 048
  5. URSO [Suspect]
     Indication: CHOLELITHIASIS

REACTIONS (2)
  - DRUG INEFFECTIVE [None]
  - HYPOAESTHESIA [None]
